FAERS Safety Report 9800122 (Version 2)
Quarter: 2014Q1

REPORT INFORMATION
  Report Type: Spontaneous
  Country: US (occurrence: US)
  Receive Date: 20140106
  Receipt Date: 20140106
  Transmission Date: 20141002
  Serious: No
  Sender: FDA-Public Use
  Company Number: US-GILEAD-2010-0032430

PATIENT
  Sex: Male
  Weight: 65.77 kg

DRUGS (10)
  1. LETAIRIS [Suspect]
     Indication: PULMONARY ARTERIAL HYPERTENSION
     Route: 048
     Dates: start: 20100225
  2. REVATIO [Concomitant]
  3. WARFARIN [Concomitant]
  4. LIPITOR [Concomitant]
  5. ISENTRESS [Concomitant]
  6. NORVIR [Concomitant]
  7. VIREAD [Concomitant]
  8. PREZISTA [Concomitant]
  9. LUNESTA [Concomitant]
  10. CHANTIX [Concomitant]

REACTIONS (1)
  - Liver function test abnormal [Unknown]
